FAERS Safety Report 4830746-2 (Version None)
Quarter: 2005Q4

REPORT INFORMATION
  Report Type: 
  Country: None (occurrence: None)
  Receive Date: 20051117
  Receipt Date: 20050929
  Transmission Date: 20060501
  Serious: Yes (Hospitalization)
  Sender: FDA-Public Use
  Company Number: US-MERCK-0510USA00578

PATIENT
  Age: 70 Year
  Sex: Male
  Weight: 80 kg

DRUGS (9)
  1. VIOXX [Suspect]
     Indication: MYALGIA
     Route: 048
     Dates: start: 20000701, end: 20021101
  2. VIOXX [Suspect]
     Indication: NECK PAIN
     Route: 048
     Dates: start: 20000701, end: 20021101
  3. TOPROL-XL [Concomitant]
     Route: 048
  4. COZAAR [Concomitant]
     Route: 048
  5. BELLADONNA ALKALOIDS [Concomitant]
     Route: 065
  6. NITROQUICK [Concomitant]
     Route: 065
  7. HYDRODIURIL [Concomitant]
     Route: 048
  8. BENTYL [Concomitant]
     Route: 065
  9. AVAPRO [Concomitant]
     Route: 065

REACTIONS (2)
  - GALLBLADDER DISORDER [None]
  - MYOCARDIAL INFARCTION [None]
